FAERS Safety Report 5583961-7 (Version None)
Quarter: 2008Q1

REPORT INFORMATION
  Report Type: 
  Country: None (occurrence: None)
  Receive Date: 20080108
  Receipt Date: 20071113
  Transmission Date: 20080703
  Serious: Yes (Hospitalization, Other)
  Sender: FDA-Public Use
  Company Number: US-PURDUE-USA_2007_0030585

PATIENT
  Sex: Female

DRUGS (1)
  1. OXYCONTIN [Suspect]
     Indication: BACK PAIN
     Dosage: 20 MG, UNK
     Dates: start: 19970101, end: 19980105

REACTIONS (6)
  - DRUG DEPENDENCE [None]
  - FALL [None]
  - INTENTIONAL SELF-INJURY [None]
  - LACERATION [None]
  - SUICIDE ATTEMPT [None]
  - TOOTH FRACTURE [None]
